FAERS Safety Report 15011003 (Version 2)
Quarter: 2018Q2

REPORT INFORMATION
  Report Type: Spontaneous
  Country: DE (occurrence: DE)
  Receive Date: 20180614
  Receipt Date: 20180627
  Transmission Date: 20180711
  Serious: Yes (Other)
  Sender: FDA-Public Use
  Company Number: PHHY2018DE020989

PATIENT
  Age: 67 Year
  Sex: Male

DRUGS (1)
  1. METOPROLOLSUCCINAT 1A PHARMA [Suspect]
     Active Substance: METOPROLOL SUCCINATE
     Indication: PRODUCT USED FOR UNKNOWN INDICATION
     Dosage: 47.5 MG, QD
     Route: 048
     Dates: start: 2013

REACTIONS (3)
  - Arrhythmia [Unknown]
  - Atrial fibrillation [Unknown]
  - Drug intolerance [Unknown]
